FAERS Safety Report 19917213 (Version 1)
Quarter: 2021Q4

REPORT INFORMATION
  Report Type: Spontaneous
  Country: US (occurrence: US)
  Receive Date: 20211004
  Receipt Date: 20211004
  Transmission Date: 20220303
  Serious: No
  Sender: FDA-Public Use
  Company Number: US-OTSUKA-2021_013135

PATIENT
  Age: 14 Year
  Sex: Female

DRUGS (2)
  1. ABILIFY [Suspect]
     Active Substance: ARIPIPRAZOLE
     Indication: Bipolar I disorder
     Dosage: UNK
     Route: 065
  2. ABILIFY [Suspect]
     Active Substance: ARIPIPRAZOLE
     Indication: Psychotic disorder

REACTIONS (3)
  - Irritability [Unknown]
  - Sedation [Unknown]
  - Product use in unapproved indication [Unknown]
